FAERS Safety Report 9512560 (Version 2)
Quarter: 2013Q3

REPORT INFORMATION
  Report Type: Spontaneous
  Country: US (occurrence: US)
  Receive Date: 20130910
  Receipt Date: 20130910
  Transmission Date: 20140515
  Serious: Yes (Death, Other)
  Sender: FDA-Public Use
  Company Number: US-ASTELLAS-2013US005996

PATIENT
  Sex: Male
  Weight: 76 kg

DRUGS (7)
  1. XTANDI [Suspect]
     Indication: PROSTATE CANCER
     Dosage: 160 MG, UID/QD
     Route: 048
     Dates: start: 20121026, end: 20130417
  2. ZOMETA [Concomitant]
     Indication: PROSTATE CANCER
     Dosage: UNK
     Route: 065
  3. ALPRAZOLAM [Concomitant]
     Indication: ANXIETY
     Dosage: 10 MG, QID
     Route: 065
     Dates: start: 20120104
  4. PROMETHAZINE [Concomitant]
     Indication: NAUSEA
     Dosage: 1 DF, PRN
     Route: 065
     Dates: start: 20110914
  5. RANITIDINE [Concomitant]
     Indication: ROUTINE HEALTH MAINTENANCE
     Dosage: 1 DF, UID/QD, AT BEDTIME
     Route: 048
     Dates: start: 20110914
  6. HYDRALAZINE [Concomitant]
     Indication: PRODUCT USED FOR UNKNOWN INDICATION
     Dosage: 1 DF, BID
     Route: 048
     Dates: start: 20110831
  7. METOPROLOL TARTRATE [Concomitant]
     Indication: ANXIETY
     Dosage: 1 DF, BID
     Route: 048
     Dates: start: 20110831

REACTIONS (16)
  - Hypertension [Unknown]
  - Anaemia [Unknown]
  - Decreased appetite [Unknown]
  - Night sweats [Unknown]
  - Weight decreased [Unknown]
  - Constipation [Unknown]
  - Asthenia [Unknown]
  - Fatigue [Unknown]
  - Pollakiuria [Unknown]
  - Diarrhoea [Unknown]
  - Lymphocytosis [Unknown]
  - Insomnia [Unknown]
  - Malignant neoplasm progression [Fatal]
  - Metastases to bone [Unknown]
  - Metastases to lymph nodes [Unknown]
  - Cancer pain [Unknown]
